FAERS Safety Report 9662311 (Version 2)
Quarter: 2013Q4

REPORT INFORMATION
  Report Type: Spontaneous
  Country: US (occurrence: US)
  Receive Date: 20131031
  Receipt Date: 20131031
  Transmission Date: 20140711
  Serious: No
  Sender: FDA-Public Use
  Company Number: US-PURDUE-USA-2010-0062497

PATIENT
  Sex: Female

DRUGS (2)
  1. OXYCONTIN (NDA 22-272) [Suspect]
     Indication: DIABETIC NEUROPATHY
     Dosage: UNK
  2. OXYCONTIN (NDA 22-272) [Suspect]
     Indication: INTERMITTENT CLAUDICATION

REACTIONS (3)
  - Medication residue present [Unknown]
  - Product taste abnormal [Unknown]
  - Drug ineffective [Unknown]
